FAERS Safety Report 17820109 (Version 1)
Quarter: 2020Q2

REPORT INFORMATION
  Report Type: Spontaneous
  Country: IT (occurrence: IT)
  Receive Date: 20200525
  Receipt Date: 20200525
  Transmission Date: 20200714
  Serious: Yes (Hospitalization, Other)
  Sender: FDA-Public Use
  Company Number: IT-AUROBINDO-AUR-APL-2020-025353

PATIENT
  Age: 64 Year
  Sex: Male

DRUGS (1)
  1. METRONIDAZOLE. [Suspect]
     Active Substance: METRONIDAZOLE
     Indication: ABDOMINAL ABSCESS
     Dosage: 500 MILLIGRAM, FOUR TIMES/DAY
     Route: 065

REACTIONS (3)
  - Partial seizures with secondary generalisation [Recovered/Resolved]
  - Toxic encephalopathy [Recovered/Resolved]
  - Generalised tonic-clonic seizure [Recovered/Resolved]
